FAERS Safety Report 20626371 (Version 1)
Quarter: 2022Q1

REPORT INFORMATION
  Report Type: Spontaneous
  Country: IL (occurrence: IL)
  Receive Date: 20220323
  Receipt Date: 20220323
  Transmission Date: 20220423
  Serious: Yes (Life-Threatening)
  Sender: FDA-Public Use
  Company Number: IL-TEVA-2022-IL-2019107

PATIENT
  Age: 45 Year
  Sex: Female

DRUGS (1)
  1. PACLITAXEL [Suspect]
     Active Substance: PACLITAXEL
     Indication: Breast cancer
     Route: 065
     Dates: start: 20220307

REACTIONS (3)
  - Vomiting [Unknown]
  - Dyspnoea [Unknown]
  - Flushing [Unknown]

NARRATIVE: CASE EVENT DATE: 20220307
